FAERS Safety Report 7685277-1 (Version None)
Quarter: 2011Q3

REPORT INFORMATION
  Report Type: 
  Country: None (occurrence: None)
  Receive Date: 20110816
  Receipt Date: 20110811
  Transmission Date: 20111222
  Serious: Yes (Life-Threatening)
  Sender: FDA-Public Use
  Company Number: FR-PFIZER INC-2011184642

PATIENT
  Age: 82 Year
  Sex: Male

DRUGS (3)
  1. KEPPRA [Concomitant]
     Indication: EPILEPSY
  2. PIPERACILLIN AND TAZOBACTAM [Suspect]
     Indication: BACTERAEMIA
     Dosage: 1 DF, 4X/DAY
     Route: 042
     Dates: start: 20110724, end: 20110727
  3. DEPAKENE [Concomitant]
     Indication: EPILEPSY

REACTIONS (2)
  - THROMBOCYTOPENIA [None]
  - HAEMORRHAGE [None]
